FAERS Safety Report 24266173 (Version 3)
Quarter: 2025Q4

REPORT INFORMATION
  Report Type: Spontaneous
  Country: US (occurrence: US)
  Receive Date: 20240830
  Receipt Date: 20251218
  Transmission Date: 20260117
  Serious: Yes (Other)
  Sender: ROCHE
  Company Number: US-ROCHE-10000068870

PATIENT
  Sex: Male
  Weight: 19.96 kg

DRUGS (4)
  1. HEMLIBRA [Suspect]
     Active Substance: EMICIZUMAB-KXWH
     Indication: Factor VIII deficiency
     Dosage: STRENGTH: 60MG/0.4ML
     Route: 058
     Dates: start: 202306
  2. HEMLIBRA [Suspect]
     Active Substance: EMICIZUMAB-KXWH
     Dosage: STRENGTH: 105MG/0.7ML
     Route: 058
     Dates: start: 202306
  3. Aminocaproic acid oral soln [Concomitant]
  4. alphanate inj [Concomitant]

REACTIONS (3)
  - Epilepsy [Unknown]
  - Oropharyngeal pain [Unknown]
  - Seizure [Unknown]
